FAERS Safety Report 6400797-5 (Version None)
Quarter: 2009Q4

REPORT INFORMATION
  Report Type: 
  Country: None (occurrence: None)
  Receive Date: 20091014
  Receipt Date: 20091007
  Transmission Date: 20100525
  Serious: Yes (Other)
  Sender: FDA-Public Use
  Company Number: BR-ABBOTT-09P-020-0601572-00

PATIENT
  Sex: Female
  Weight: 75 kg

DRUGS (9)
  1. HUMIRA [Suspect]
     Indication: RHEUMATOID ARTHRITIS
     Route: 058
     Dates: start: 20090501
  2. ATENSINA [Concomitant]
     Indication: HYPERTENSION
     Route: 048
     Dates: start: 20010101
  3. MODURETIC 5-50 [Concomitant]
     Indication: HYPERTENSION
     Route: 048
     Dates: start: 20010101
  4. FLUOXETINE [Concomitant]
     Indication: DEPRESSION
     Route: 048
     Dates: start: 20070101
  5. ENDOFOLIN [Concomitant]
     Indication: VITAMIN SUPPLEMENTATION
     Route: 048
     Dates: start: 20060101
  6. BROMAZEPAM [Concomitant]
     Indication: SEDATIVE THERAPY
     Dosage: 1/2 TABLET DAILY
     Route: 048
     Dates: start: 20060101
  7. ARAVA [Concomitant]
     Indication: RHEUMATOID ARTHRITIS
     Route: 048
     Dates: start: 20060101
  8. CALTRATE [Concomitant]
     Indication: VITAMIN SUPPLEMENTATION
     Dosage: 600. ONE DAILY
     Route: 048
     Dates: start: 20070101
  9. AAS [Concomitant]
     Indication: ANTICOAGULANT THERAPY
     Route: 048

REACTIONS (5)
  - ARTHRALGIA [None]
  - BLOOD CHOLESTEROL ABNORMAL [None]
  - CONVULSION [None]
  - FALL [None]
  - LOSS OF CONSCIOUSNESS [None]
